FAERS Safety Report 12992359 (Version 1)
Quarter: 2016Q4

REPORT INFORMATION
  Report Type: Spontaneous
  Country: US (occurrence: US)
  Receive Date: 20161202
  Receipt Date: 20161202
  Transmission Date: 20170207
  Serious: Yes (Hospitalization)
  Sender: FDA-Public Use
  Company Number: US-SUN PHARMACEUTICAL INDUSTRIES LTD-2016SUN00505

PATIENT
  Age: 52 Year
  Sex: Male

DRUGS (2)
  1. TECHNETIUM TC-99M PYROPHOSPHATE KIT [Suspect]
     Active Substance: TECHNETIUM TC-99M PYROPHOSPHATE
     Indication: MULTIPLE GATED ACQUISITION SCAN
     Dosage: 6 MG/2ML, OD
     Route: 042
     Dates: start: 20161103, end: 20161103
  2. SODIUM PERTECHNETATE TC 99M [Suspect]
     Active Substance: TECHNETIUM TC-99M SODIUM PERTECHNETATE
     Indication: MULTIPLE GATED ACQUISITION SCAN
     Dosage: TC 04
     Route: 042
     Dates: start: 20161103, end: 20161103

REACTIONS (2)
  - Renal failure [Unknown]
  - Hypersensitivity [Unknown]

NARRATIVE: CASE EVENT DATE: 20161103
